FAERS Safety Report 26127942 (Version 1)
Quarter: 2025Q4

REPORT INFORMATION
  Report Type: Spontaneous
  Country: EU (occurrence: EU)
  Receive Date: 20251206
  Receipt Date: 20251206
  Transmission Date: 20260117
  Serious: Yes (Other)
  Sender: AMGEN
  Company Number: EU-AMGEN-DEUSP2025242213

PATIENT
  Age: 24 Year
  Sex: Female

DRUGS (1)
  1. PROCYSBI [Suspect]
     Active Substance: CYSTEAMINE BITARTRATE
     Indication: Cystinosis
     Dosage: UNK
     Route: 065

REACTIONS (11)
  - Renal failure [Recovered/Resolved]
  - Hypothyroidism [Not Recovered/Not Resolved]
  - Kidney transplant rejection [Recovered/Resolved]
  - Renal disorder [Recovered/Resolved]
  - Normal newborn [Recovered/Resolved]
  - Hypertension [Not Recovered/Not Resolved]
  - Blood creatinine increased [Recovered/Resolved]
  - Anaemia [Unknown]
  - Platelet count decreased [Unknown]
  - Pre-eclampsia [Recovered/Resolved]
  - Maternal exposure during pregnancy [Recovered/Resolved]

NARRATIVE: CASE EVENT DATE: 20250101
